FAERS Safety Report 4608973-9 (Version None)
Quarter: 2005Q1

REPORT INFORMATION
  Report Type: 
  Country: None (occurrence: None)
  Receive Date: 20050311
  Receipt Date: 20050303
  Transmission Date: 20050727
  Serious: Yes (Hospitalization)
  Sender: FDA-Public Use
  Company Number: 2005039910

PATIENT
  Age: 13 Year
  Sex: Female
  Weight: 63 kg

DRUGS (2)
  1. ZITHROMAX [Suspect]
     Indication: RESPIRATORY DISORDER
     Dosage: 500 MG (250 MG, 2 IN 1 D), ORAL
     Route: 048
     Dates: start: 20050113, end: 20050114
  2. AMOXICILLIN [Concomitant]

REACTIONS (4)
  - JOINT SWELLING [None]
  - MYALGIA [None]
  - PRURITUS [None]
  - URTICARIA [None]
